FAERS Safety Report 12190734 (Version 1)
Quarter: 2016Q1

REPORT INFORMATION
  Report Type: Spontaneous
  Country: GB (occurrence: GB)
  Receive Date: 20160318
  Receipt Date: 20160318
  Transmission Date: 20160526
  Serious: Yes (Hospitalization)
  Sender: FDA-Public Use
  Company Number: GB-WATSON-2016-05194

PATIENT
  Age: 63 Year
  Sex: Female
  Weight: 70 kg

DRUGS (2)
  1. PROPRANOLOL [Suspect]
     Active Substance: PROPRANOLOL\PROPRANOLOL HYDROCHLORIDE
     Indication: ANXIETY
     Dosage: 80 MG, PRN (ONCE DAILY, MODIFIED RELEASE.)
     Route: 048
     Dates: start: 201601
  2. ADIZEM-XL [Suspect]
     Active Substance: DILTIAZEM HYDROCHLORIDE
     Indication: MYOCARDIAL ISCHAEMIA
     Dosage: 300 MG, DAILY
     Route: 048

REACTIONS (6)
  - Bradycardia [Recovered/Resolved]
  - Cold sweat [Unknown]
  - Paraesthesia [Unknown]
  - Hypotension [Recovered/Resolved]
  - Hyperhidrosis [Unknown]
  - Dizziness [Unknown]

NARRATIVE: CASE EVENT DATE: 20160223
